FAERS Safety Report 7448129-8 (Version None)
Quarter: 2011Q2

REPORT INFORMATION
  Report Type: 
  Country: None (occurrence: None)
  Receive Date: 20110429
  Receipt Date: 20100322
  Transmission Date: 20111010
  Serious: No
  Sender: FDA-Public Use
  Company Number: US-ASTRAZENECA-2010SE07951

PATIENT
  Age: 38 Year
  Sex: Female

DRUGS (5)
  1. SINGULAIR [Concomitant]
  2. LISINOPRIL [Concomitant]
     Indication: HYPERTENSION
  3. XOPENEX HFA [Concomitant]
  4. ZYRTEC [Concomitant]
  5. NEXIUM [Suspect]
     Indication: GASTROOESOPHAGEAL REFLUX DISEASE
     Route: 048
     Dates: start: 20030101

REACTIONS (2)
  - DRUG DOSE OMISSION [None]
  - INJURY [None]
